FAERS Safety Report 23410973 (Version 1)
Quarter: 2024Q1

REPORT INFORMATION
  Report Type: Spontaneous
  Country: ES (occurrence: ES)
  Receive Date: 20240117
  Receipt Date: 20240117
  Transmission Date: 20240410
  Serious: Yes (Other)
  Sender: FDA-Public Use
  Company Number: ES-AMGEN-ESPSP2021208126

PATIENT

DRUGS (7)
  1. BEVACIZUMAB [Suspect]
     Active Substance: BEVACIZUMAB
     Indication: Cervix carcinoma
     Dosage: UNK
     Route: 065
  2. BEVACIZUMAB [Suspect]
     Active Substance: BEVACIZUMAB
     Indication: Adenocarcinoma of the cervix
  3. BEVACIZUMAB [Suspect]
     Active Substance: BEVACIZUMAB
     Indication: Metastatic squamous cell carcinoma
  4. BINTRAFUSP ALFA [Concomitant]
     Active Substance: BINTRAFUSP ALFA
     Dosage: 2400 MILLIGRAM, Q3WK
  5. CISPLATIN [Concomitant]
     Active Substance: CISPLATIN
     Dosage: 50 MILLIGRAM/ METER SQAURE
  6. CARBOPLATIN [Concomitant]
     Active Substance: CARBOPLATIN
     Dosage: UNK
  7. PACLITAXEL [Concomitant]
     Active Substance: PACLITAXEL
     Dosage: 175 MILLIGRAM/ METER SQAURE

REACTIONS (19)
  - Metastatic squamous cell carcinoma [Unknown]
  - Hypothyroidism [Unknown]
  - Lipase increased [Unknown]
  - Adrenocortical insufficiency acute [Unknown]
  - Rash maculo-papular [Unknown]
  - Neutrophil count decreased [Unknown]
  - Small intestinal haemorrhage [Unknown]
  - Anaemia [Unknown]
  - Adverse drug reaction [Unknown]
  - Amylase increased [Unknown]
  - Haematuria [Unknown]
  - Pruritus [Unknown]
  - Therapy partial responder [Unknown]
  - Keratoacanthoma [Unknown]
  - Vaginal haemorrhage [Unknown]
  - Stomatitis [Unknown]
  - Urinary tract infection [Unknown]
  - Diarrhoea [Unknown]
  - Pelvic pain [Unknown]
